FAERS Safety Report 9797694 (Version 5)
Quarter: 2015Q2

REPORT INFORMATION
  Report Type: Spontaneous
  Country: US (occurrence: US)
  Receive Date: 20140106
  Receipt Date: 20150515
  Transmission Date: 20150821
  Serious: Yes (Hospitalization, Other)
  Sender: FDA-Public Use
  Company Number: US-PFIZER INC-2014001857

PATIENT
  Age: 38 Year
  Sex: Male
  Weight: 125 kg

DRUGS (9)
  1. TOPAMAX [Suspect]
     Active Substance: TOPIRAMATE
  2. AMLODIPINE [Concomitant]
     Active Substance: AMLODIPINE BESYLATE
     Indication: HYPERTENSION
     Dosage: 5 MG, DAILY
     Dates: start: 2008
  3. DILANTIN [Suspect]
     Active Substance: PHENYTOIN
     Dosage: 900 MG, 3X/DAY
     Route: 048
  4. DILANTIN [Suspect]
     Active Substance: PHENYTOIN
     Dosage: 600 MG, DAILY
  5. DILANTIN [Suspect]
     Active Substance: PHENYTOIN
     Dosage: 1000 MG, UNK
  6. DILANTIN [Suspect]
     Active Substance: PHENYTOIN
     Dosage: 300MG IN MORNING, 200MG IN NOON AND 200MG IN NIGHT, 3X/DAY
     Dates: start: 20040106
  7. LOVENOX [Concomitant]
     Active Substance: ENOXAPARIN SODIUM
     Dosage: UNK
  8. CORICIDIN HBP [Suspect]
     Active Substance: ACETAMINOPHEN\CHLORPHENIRAMINE MALEATE
  9. PHENYTOIN. [Concomitant]
     Active Substance: PHENYTOIN
     Dosage: 1200 MG, UNK

REACTIONS (10)
  - Memory impairment [Unknown]
  - Amnesia [Unknown]
  - Drug dose omission [Unknown]
  - Nasopharyngitis [Unknown]
  - Dysarthria [Unknown]
  - Coma [Unknown]
  - Tooth abscess [Unknown]
  - Activities of daily living impaired [Unknown]
  - Drug level decreased [Unknown]
  - Pyrexia [Unknown]

NARRATIVE: CASE EVENT DATE: 20110220
